FAERS Safety Report 8703465 (Version 4)
Quarter: 2014Q1

REPORT INFORMATION
  Report Type: Spontaneous
  Country: US (occurrence: None)
  Receive Date: 20120719
  Receipt Date: 20130815
  Transmission Date: 20141002
  Serious: Yes (Other)
  Sender: FDA-Public Use
  Company Number: ADR-2012-01297

PATIENT
  Sex: Male

DRUGS (1)
  1. LIORESAL [Suspect]
     Dosage: 364 MCG/DAY

REACTIONS (11)
  - Implant site infection [None]
  - Staphylococcal infection [None]
  - Purulent discharge [None]
  - Muscle spasticity [None]
  - Condition aggravated [None]
  - Memory impairment [None]
  - Implant site erythema [None]
  - Implant site swelling [None]
  - Staphylococcus test positive [None]
  - Memory impairment [None]
  - Muscle spasticity [None]
